FAERS Safety Report 24365718 (Version 1)
Quarter: 2024Q3

REPORT INFORMATION
  Report Type: Spontaneous
  Country: US (occurrence: US)
  Receive Date: 20240926
  Receipt Date: 20240926
  Transmission Date: 20241017
  Serious: No
  Sender: IPSEN
  Company Number: US-IPSEN Group, Research and Development-2024-19119

PATIENT
  Age: 77 Year
  Sex: Female

DRUGS (1)
  1. ONIVYDE [Suspect]
     Active Substance: IRINOTECAN HYDROCHLORIDE
     Indication: Pancreatic carcinoma metastatic
     Dosage: UNKNOWN
     Route: 065

REACTIONS (1)
  - Lip swelling [Unknown]
